FAERS Safety Report 20153619 (Version 10)
Quarter: 2022Q2

REPORT INFORMATION
  Report Type: Spontaneous
  Country: US (occurrence: US)
  Receive Date: 20211206
  Receipt Date: 20220520
  Transmission Date: 20220721
  Serious: No
  Sender: FDA-Public Use
  Company Number: US-ALXN-A202113277

PATIENT
  Sex: Female

DRUGS (3)
  1. STRENSIQ [Suspect]
     Active Substance: ASFOTASE ALFA
     Indication: Hypophosphatasia
     Dosage: 101 MG , SIX TIMES/WEEK
     Route: 058
  2. BENADRYL                           /00000402/ [Concomitant]
     Indication: Prophylaxis
     Dosage: UNK
     Route: 065
  3. CLARITIN                           /00413701/ [Concomitant]
     Indication: Premedication
     Dosage: UNK
     Route: 065

REACTIONS (11)
  - Product dose omission issue [Unknown]
  - Rash macular [Not Recovered/Not Resolved]
  - Migraine [Recovered/Resolved]
  - Musculoskeletal disorder [Unknown]
  - Injection site urticaria [Not Recovered/Not Resolved]
  - Injection site reaction [Not Recovered/Not Resolved]
  - Injection site pain [Not Recovered/Not Resolved]
  - Injection site erythema [Unknown]
  - Injection site bruising [Recovered/Resolved]
  - Injection site pruritus [Recovered/Resolved]
  - Injection site swelling [Unknown]
